FAERS Safety Report 8503754 (Version 3)
Quarter: 2012Q4

REPORT INFORMATION
  Report Type: 
  Country: US (occurrence: US)
  Receive Date: 20120411
  Receipt Date: 20121219
  Transmission Date: 20130627
  Serious: Yes (Hospitalization)
  Sender: FDA-Public Use
  Company Number: US-ELI_LILLY_AND_COMPANY-US201203002660

PATIENT
  Age: 90 Year
  Sex: Female
  Weight: 54.88 kg

DRUGS (32)
  1. FORTEO [Suspect]
     Indication: OSTEOPOROSIS
     Dosage: 20 ug, qd
     Route: 058
     Dates: end: 20120306
  2. FORTEO [Suspect]
     Dosage: 20 ug, 2/W
     Route: 058
  3. AMITIZA [Concomitant]
     Dosage: 24 ug, bid
  4. PREDNISONE [Concomitant]
     Indication: CHRONIC OBSTRUCTIVE PULMONARY DISEASE
     Dosage: 10 mg, qd
     Route: 048
  5. WARFARIN [Concomitant]
     Indication: ATRIAL FIBRILLATION
     Dosage: 2.5 mg, 4/W
  6. WARFARIN [Concomitant]
     Dosage: 5 mg, 3/W
  7. MULTIVITAMIN [Concomitant]
  8. MIRALAX [Concomitant]
     Dosage: 17 g, qd
  9. VITAMIN D NOS [Concomitant]
     Dosage: 2000 IU, qd
  10. FERROUS SULFATE [Concomitant]
     Dosage: 345 mg, UNK
  11. ALPRAZOLAM [Concomitant]
     Dosage: 0.5 mg, each evening
  12. ALPRAZOLAM [Concomitant]
     Dosage: 0.5 UNK, other
  13. FUROSEMIDE [Concomitant]
     Dosage: 40 mg, UNK
  14. POTASSIUM [Concomitant]
  15. MAGNESIUM [Concomitant]
  16. OSCAL                              /00751519/ [Concomitant]
  17. ZINC [Concomitant]
  18. OMEPRAZOLE [Concomitant]
  19. WOMEN^S MULTI [Concomitant]
     Dosage: UNK
  20. KLOR-CON M20 [Concomitant]
     Dosage: 20 mEq, UNK
  21. MANGANESE [Concomitant]
  22. BUDESONIDE [Concomitant]
  23. PROPAFENONE HCL [Concomitant]
     Dosage: 150 mg, bid
  24. SENNA SPP. [Concomitant]
     Dosage: 8.6 mg, bid
  25. BORON [Concomitant]
  26. GAS X [Concomitant]
     Dosage: 125 mg, qid
  27. TRAMADOL [Concomitant]
     Dosage: 50 mg, UNK
  28. ACTONEL [Concomitant]
     Dosage: 150 mg, monthly (1/M)
     Dates: end: 20120207
  29. VITAMIN B1 [Concomitant]
  30. CALCIUM [Concomitant]
     Dosage: UNK
  31. COMPAZINE [Concomitant]
     Dosage: UNK
  32. NYSTATIN [Concomitant]
     Dosage: UNK

REACTIONS (8)
  - Hypercalcaemia [Recovered/Resolved]
  - Hypovolaemia [Unknown]
  - Metabolic encephalopathy [Unknown]
  - Pneumonia [Unknown]
  - Hypocalcaemia [Unknown]
  - Drug prescribing error [Not Recovered/Not Resolved]
  - Compression fracture [Unknown]
  - Productive cough [Not Recovered/Not Resolved]
